FAERS Safety Report 5733989-9 (Version None)
Quarter: 2008Q2

REPORT INFORMATION
  Report Type: 
  Country: None (occurrence: None)
  Receive Date: 20080509
  Receipt Date: 20080403
  Transmission Date: 20081010
  Serious: No
  Sender: FDA-Public Use
  Company Number: US-BOEHRINGER INGELHEIM GMBH, GERMANY-2008-BP-05191BP

PATIENT
  Age: 55 Year
  Sex: Female

DRUGS (10)
  1. MIRAPEX [Suspect]
     Indication: RESTLESS LEGS SYNDROME
     Route: 048
     Dates: start: 20061001
  2. NYSTATIN [Concomitant]
  3. LEXAPRO [Concomitant]
  4. PREVACID [Concomitant]
  5. PROVIGIL [Concomitant]
     Indication: SLEEP DISORDER THERAPY
  6. LONOX [Concomitant]
  7. KLONOPIN [Concomitant]
  8. ASACOL [Concomitant]
  9. LASIX [Concomitant]
  10. METOLAZONE [Concomitant]

REACTIONS (4)
  - DISEASE PROGRESSION [None]
  - DYSKINESIA [None]
  - MUSCLE TWITCHING [None]
  - OVERDOSE [None]
